FAERS Safety Report 11744429 (Version 1)
Quarter: 2015Q4

REPORT INFORMATION
  Report Type: Spontaneous
  Country: JP (occurrence: JP)
  Receive Date: 20151116
  Receipt Date: 20151116
  Transmission Date: 20160304
  Serious: Yes (Hospitalization)
  Sender: FDA-Public Use
  Company Number: JP-BAYER-2015-461338

PATIENT
  Age: 31 Year
  Sex: Female

DRUGS (3)
  1. HEPARIN CALCIUM [Concomitant]
     Active Substance: HEPARIN CALCIUM
     Dosage: 10000 U, QD
  2. ANTI THROMBIN III [Concomitant]
     Dosage: 1500 U, OW
     Route: 042
  3. ACETYLSALICYLIC ACID({=100 MG) [Suspect]
     Active Substance: ASPIRIN
     Indication: ANTITHROMBIN III DEFICIENCY
     Dosage: 100 MG, QD
     Route: 048

REACTIONS (6)
  - Deep vein thrombosis [Recovered/Resolved]
  - Off label use [Recovered/Resolved]
  - Labour pain [Recovered/Resolved]
  - Bradycardia foetal [Recovered/Resolved]
  - Exposure during pregnancy [Recovered/Resolved]
  - Premature labour [Recovered/Resolved]
